FAERS Safety Report 4492293-X (Version None)
Quarter: 2004Q3

REPORT INFORMATION
  Report Type: 
  Country: None (occurrence: None)
  Receive Date: 20040924
  Receipt Date: 20040527
  Transmission Date: 20050211
  Serious: Yes (Other)
  Sender: FDA-Public Use
  Company Number: 2004036029

PATIENT
  Sex: Female

DRUGS (4)
  1. NARDIL [Suspect]
     Indication: ILL-DEFINED DISORDER
     Dosage: 45 MG (15 MG, 3 IN 1 D), ORAL
     Route: 048
  2. ALL OTHER THERAPEUTIC PRODUCTS (ALL OTHER THERAPEUTIC PRODUCTS) [Suspect]
     Indication: ILL-DEFINED DISORDER
  3. VALPROATE SODIUM [Concomitant]
  4. CLORAZEPATE DIPOTASSIUM [Concomitant]

REACTIONS (3)
  - CONSTIPATION [None]
  - HYPERHIDROSIS [None]
  - HYPERTENSIVE CRISIS [None]
